FAERS Safety Report 19085426 (Version 2)
Quarter: 2021Q3

REPORT INFORMATION
  Report Type: Report from Study
  Country: US (occurrence: US)
  Receive Date: 20210401
  Receipt Date: 20210719
  Transmission Date: 20211014
  Serious: Yes (Other)
  Sender: FDA-Public Use
  Company Number: US-AMGEN-USASP2021049592

PATIENT
  Sex: Male

DRUGS (4)
  1. MODERNA COVID?19 VACCINE [Concomitant]
     Active Substance: CX-024414
     Dosage: UNK
     Route: 065
  2. VITAMIN D [COLECALCIFEROL] [Suspect]
     Active Substance: CHOLECALCIFEROL
     Indication: PRODUCT USED FOR UNKNOWN INDICATION
     Dosage: UNK
     Route: 065
  3. METHOTREXATE. [Concomitant]
     Active Substance: METHOTREXATE
     Dosage: UNK
     Route: 065
     Dates: end: 202102
  4. ENBREL [Suspect]
     Active Substance: ETANERCEPT
     Indication: PSORIATIC ARTHROPATHY
     Dosage: 50 MILLIGRAM, 2 TIMES/WK
     Route: 065

REACTIONS (16)
  - Blood calcium abnormal [Unknown]
  - Fibromyalgia [Unknown]
  - Vision blurred [Unknown]
  - Paraesthesia [Unknown]
  - Oesophageal adenocarcinoma [Unknown]
  - Chest pain [Unknown]
  - Dysphagia [Unknown]
  - Muscle spasms [Unknown]
  - Off label use [Unknown]
  - Arthralgia [Unknown]
  - Blood parathyroid hormone increased [Unknown]
  - Tendon pain [Unknown]
  - Oropharyngeal pain [Unknown]
  - Spinal stenosis [Unknown]
  - Mental disorder [Unknown]
  - Skin plaque [Unknown]

NARRATIVE: CASE EVENT DATE: 2017
